FAERS Safety Report 7058186 (Version 2)
Quarter: 2012Q4

REPORT INFORMATION
  Report Type: Spontaneous
  Country: GB (occurrence: None)
  Receive Date: 20090710
  Receipt Date: 20120813
  Transmission Date: 20130627
  Serious: Yes (Disabling, Other)
  Sender: FDA-Public Use
  Company Number: 2009AL004411

PATIENT
  Age: 62 Year
  Sex: Female

DRUGS (7)
  1. CITALOPRAM HYDROBROMIDE [Suspect]
     Indication: DEPRESSION
     Dosage: 20 MG; PO
     Route: 048
     Dates: start: 20090411
  2. VOLTAROL [Concomitant]
  3. GLUCOSAMINE [Concomitant]
  4. CHONDROITIN [Concomitant]
  5. PARACETAMOL [Concomitant]
  6. ZOPICLONE [Concomitant]
  7. PENICILLIN [Concomitant]

REACTIONS (5)
  - Memory impairment [None]
  - Nail disorder [None]
  - Nail disorder [None]
  - Onychoclasis [None]
  - Nail ridging [None]
